FAERS Safety Report 11786555 (Version 1)
Quarter: 2015Q4

REPORT INFORMATION
  Report Type: Spontaneous
  Country: US (occurrence: US)
  Receive Date: 20151130
  Receipt Date: 20151130
  Transmission Date: 20160305
  Serious: Yes (Other)
  Sender: FDA-Public Use
  Company Number: PHHY2005US008544

PATIENT
  Sex: Female

DRUGS (6)
  1. REGELAN//METOCLOPRAMIDE [Interacting]
     Active Substance: METOCLOPRAMIDE
     Indication: VOMITING
     Route: 065
     Dates: start: 200409, end: 200409
  2. PHENERGAN [Suspect]
     Active Substance: PROMETHAZINE HYDROCHLORIDE
     Indication: VOMITING
     Route: 065
     Dates: start: 200409, end: 200409
  3. ZOFRAN [Interacting]
     Active Substance: ONDANSETRON HYDROCHLORIDE
     Indication: VOMITING IN PREGNANCY
     Dosage: OT
     Route: 042
     Dates: start: 200409, end: 200409
  4. ZOFRAN [Interacting]
     Active Substance: ONDANSETRON HYDROCHLORIDE
     Indication: HYPEREMESIS GRAVIDARUM
  5. ZOFRAN [Interacting]
     Active Substance: ONDANSETRON HYDROCHLORIDE
     Indication: VOMITING
  6. REGELAN//METOCLOPRAMIDE [Interacting]
     Active Substance: METOCLOPRAMIDE
     Indication: NAUSEA

REACTIONS (10)
  - Abortion spontaneous [Unknown]
  - Vaginal haemorrhage [Unknown]
  - Malaise [Unknown]
  - Infection [Unknown]
  - Maternal exposure during pregnancy [Unknown]
  - Off label use [None]
  - Drug interaction [Unknown]
  - Product use issue [Unknown]
  - Cardiac flutter [Unknown]
  - Normal labour [Unknown]

NARRATIVE: CASE EVENT DATE: 2004
